FAERS Safety Report 9056897 (Version 2)
Quarter: 2013Q1

REPORT INFORMATION
  Report Type: Spontaneous
  Country: US (occurrence: US)
  Receive Date: 20130201
  Receipt Date: 20130211
  Transmission Date: 20140127
  Serious: Yes (Hospitalization)
  Sender: FDA-Public Use
  Company Number: US-AMGEN-USASP2013006252

PATIENT
  Age: 34 Year
  Sex: Female

DRUGS (1)
  1. ENBREL [Suspect]
     Indication: PSORIASIS
     Dosage: 50 MG, TWICE A WEEK
     Dates: start: 20051201

REACTIONS (9)
  - Intervertebral disc disorder [Recovered/Resolved]
  - Nerve compression [Recovered/Resolved]
  - Gastric bypass [Recovered/Resolved]
  - Uterine prolapse [Recovered/Resolved]
  - Sensory loss [Recovered/Resolved]
  - Pain in extremity [Not Recovered/Not Resolved]
  - Weight increased [Not Recovered/Not Resolved]
  - Scar [Not Recovered/Not Resolved]
  - Psoriasis [Not Recovered/Not Resolved]
